FAERS Safety Report 6526943-0 (Version None)
Quarter: 2009Q4

REPORT INFORMATION
  Report Type: 
  Country: None (occurrence: None)
  Receive Date: 20091229
  Receipt Date: 20091222
  Transmission Date: 20100525
  Serious: Yes (Life-Threatening, Hospitalization)
  Sender: FDA-Public Use
  Company Number: VISP-NO-0912S-0609

PATIENT
  Age: 64 Year
  Sex: Male

DRUGS (8)
  1. VISIPAQUE [Suspect]
     Indication: DRUG USE FOR UNKNOWN INDICATION
     Dosage: 100 ML, SINGLE DOSE, I.V.
     Route: 042
     Dates: start: 20091207, end: 20091207
  2. OMEPRAZOLE (HELICID) [Concomitant]
  3. HUMULIN R [Concomitant]
  4. DIGOXIN [Concomitant]
  5. ENOXAPARIN SODIUM (CLEXANE) [Concomitant]
  6. LEVOTHYROXINE SODIUM (LETROX) [Concomitant]
  7. RAMIPRIL [Concomitant]
  8. CLINDAMYCIN HYDROCHLORIDE [Concomitant]

REACTIONS (2)
  - ACUTE RESPIRATORY FAILURE [None]
  - PULMONARY OEDEMA [None]
